FAERS Safety Report 25324725 (Version 1)
Quarter: 2025Q2

REPORT INFORMATION
  Report Type: Spontaneous
  Country: US (occurrence: None)
  Receive Date: 20250515
  Receipt Date: 20250515
  Transmission Date: 20250716
  Serious: Yes (Other)
  Sender: FDA-CTU
  Company Number: None

PATIENT
  Age: 60 Year
  Sex: Female
  Weight: 42.7 kg

DRUGS (1)
  1. BIMEKIZUMAB-BKZX [Suspect]
     Active Substance: BIMEKIZUMAB-BKZX
     Dates: start: 20241210, end: 20250323

REACTIONS (1)
  - Depression [None]

NARRATIVE: CASE EVENT DATE: 20250328
